FAERS Safety Report 7341350-9 (Version None)
Quarter: 2011Q1

REPORT INFORMATION
  Report Type: 
  Country: None (occurrence: None)
  Receive Date: 20110309
  Receipt Date: 20110302
  Transmission Date: 20110831
  Serious: Yes (Hospitalization, Other)
  Sender: FDA-Public Use
  Company Number: CA-AMGEN-CANSP2011007561

PATIENT
  Age: 57 Year
  Sex: Female
  Weight: 90.703 kg

DRUGS (2)
  1. ENBREL [Suspect]
     Indication: PUSTULAR PSORIASIS
     Dosage: 50 MG, QWK
     Dates: start: 20090416, end: 20110123
  2. ENBREL [Suspect]
     Indication: PSORIASIS

REACTIONS (2)
  - MYOCARDIAL INFARCTION [None]
  - SYNCOPE [None]
